FAERS Safety Report 11149173 (Version 1)
Quarter: 2015Q2

REPORT INFORMATION
  Report Type: Report from Study
  Country: FR (occurrence: FR)
  Receive Date: 20150529
  Receipt Date: 20150529
  Transmission Date: 20150821
  Serious: Yes (Hospitalization, Other)
  Sender: FDA-Public Use
  Company Number: FR-GLAXOSMITHKLINE-FR2015GSK073549

PATIENT
  Age: 75 Year
  Sex: Male

DRUGS (7)
  1. OMEGA-3-ACID ETHYL ESTERS. [Suspect]
     Active Substance: OMEGA-3-ACID ETHYL ESTERS
     Indication: ISCHAEMIC HEART DISEASE PROPHYLAXIS
     Dosage: UNK
     Dates: start: 20081215, end: 20141217
  2. TEMERIT [Concomitant]
     Active Substance: NEBIVOLOL
  3. LASILIX [Concomitant]
     Active Substance: FUROSEMIDE
  4. PLAVIX [Concomitant]
     Active Substance: CLOPIDOGREL BISULFATE
  5. COVERSYL [Concomitant]
     Active Substance: PERINDOPRIL
  6. TAHOR [Concomitant]
     Active Substance: ATORVASTATIN CALCIUM
  7. KARDEGIC [Concomitant]
     Active Substance: ASPIRIN LYSINE

REACTIONS (2)
  - Adverse event [Unknown]
  - Renal failure [Unknown]

NARRATIVE: CASE EVENT DATE: 2012
